FAERS Safety Report 8822387 (Version 2)
Quarter: 2013Q4

REPORT INFORMATION
  Report Type: Spontaneous
  Country: AU (occurrence: AU)
  Receive Date: 20121003
  Receipt Date: 20131031
  Transmission Date: 20140711
  Serious: Yes (Hospitalization, Other)
  Sender: FDA-Public Use
  Company Number: AU-009507513-2012SP033731

PATIENT
  Sex: Female

DRUGS (3)
  1. SAPHRIS [Suspect]
     Indication: BIPOLAR I DISORDER
     Dosage: 5 MG, QD
     Route: 060
  2. SAPHRIS [Suspect]
     Indication: AFFECTIVE DISORDER
     Dosage: 5 MG, BID
     Route: 060
  3. SAPHRIS [Suspect]
     Dosage: 10 MG, BID
     Route: 060

REACTIONS (2)
  - Tachycardia [Not Recovered/Not Resolved]
  - Underdose [Unknown]
